FAERS Safety Report 6592799-3 (Version None)
Quarter: 2010Q1

REPORT INFORMATION
  Report Type: 
  Country: None (occurrence: None)
  Receive Date: 20100222
  Receipt Date: 20100216
  Transmission Date: 20100710
  Serious: Yes (Other)
  Sender: FDA-Public Use
  Company Number: US-BAYER-201014336NA

PATIENT
  Age: 32 Year
  Sex: Female

DRUGS (2)
  1. MIRENA [Suspect]
     Indication: CONTRACEPTION
     Dosage: UNIT DOSE: 52 MG
     Route: 015
     Dates: start: 20050101, end: 20100119
  2. MIRENA [Suspect]
     Dosage: UNIT DOSE: 52 MG
     Route: 015
     Dates: start: 20100119, end: 20100216

REACTIONS (1)
  - DEVICE DISLOCATION [None]
